FAERS Safety Report 19954390 (Version 1)
Quarter: 2021Q4

REPORT INFORMATION
  Report Type: Spontaneous
  Country: DE (occurrence: DE)
  Receive Date: 20211014
  Receipt Date: 20211014
  Transmission Date: 20220303
  Serious: Yes (Death, Life-Threatening, Hospitalization, Other)
  Sender: FDA-Public Use
  Company Number: DE-SCIEGEN-2021SCILIT00266

PATIENT
  Age: 61 Year
  Sex: Female

DRUGS (8)
  1. METFORMIN HYDROCHLORIDE [Suspect]
     Active Substance: METFORMIN HYDROCHLORIDE
     Indication: Product used for unknown indication
     Route: 065
  2. BISOPROLOL [Suspect]
     Active Substance: BISOPROLOL
     Indication: Product used for unknown indication
     Route: 065
  3. AMLODIPINE [Suspect]
     Active Substance: AMLODIPINE BESYLATE
     Indication: Product used for unknown indication
     Route: 065
  4. NOREPINEPHRINE [Interacting]
     Active Substance: NOREPINEPHRINE
     Indication: Circulatory collapse
     Dosage: 2 MICRO G/KG/MIN
     Route: 065
  5. EPINEPHRINE [Interacting]
     Active Substance: EPINEPHRINE
     Indication: Circulatory collapse
     Dosage: 1 MICRO G/KG/MIN
     Route: 065
  6. GLUCAGON [Interacting]
     Active Substance: GLUCAGON
     Indication: Circulatory collapse
     Route: 065
  7. CHARCOAL [Interacting]
     Active Substance: ACTIVATED CHARCOAL
     Indication: Circulatory collapse
     Route: 065
  8. VASOPRESSIN [Interacting]
     Active Substance: VASOPRESSIN
     Indication: Circulatory collapse
     Route: 065

REACTIONS (9)
  - Multiple organ dysfunction syndrome [Fatal]
  - Cardiac arrest [Unknown]
  - Rhabdomyolysis [Unknown]
  - Vasoplegia syndrome [Unknown]
  - Toxicity to various agents [Unknown]
  - Overdose [Fatal]
  - Cardiogenic shock [Unknown]
  - Lactic acidosis [Fatal]
  - Circulatory collapse [Fatal]
